FAERS Safety Report 15536426 (Version 1)
Quarter: 2018Q4

REPORT INFORMATION
  Report Type: Spontaneous
  Country: US (occurrence: US)
  Receive Date: 20181022
  Receipt Date: 20181022
  Transmission Date: 20190205
  Serious: No
  Sender: FDA-Public Use
  Company Number: US-MYLANLABS-2018M1074178

PATIENT
  Sex: Female
  Weight: 50 kg

DRUGS (2)
  1. XULANE [Suspect]
     Active Substance: ETHINYL ESTRADIOL\NORELGESTROMIN
     Indication: CONTRACEPTION
     Dosage: UNK
     Route: 062
  2. XULANE [Suspect]
     Active Substance: ETHINYL ESTRADIOL\NORELGESTROMIN
     Dosage: 1 DF, QW (FOR 3 WEEKS)
     Route: 062
     Dates: start: 20181002

REACTIONS (2)
  - Product adhesion issue [Recovered/Resolved]
  - Wrong technique in product usage process [Recovered/Resolved]
